FAERS Safety Report 8066402-X (Version None)
Quarter: 2012Q1

REPORT INFORMATION
  Report Type: 
  Country: None (occurrence: None)
  Receive Date: 20120124
  Receipt Date: 20120124
  Transmission Date: 20120608
  Serious: Yes (Hospitalization)
  Sender: FDA-Public Use
  Company Number: None

PATIENT
  Age: 16 Year
  Sex: Male
  Weight: 77.564 kg

DRUGS (5)
  1. ABILIFY [Concomitant]
  2. ESKALITH CR [Concomitant]
  3. TRAZODONE HCL [Suspect]
     Indication: INSOMNIA
     Dosage: 50.0 MG
     Route: 048
     Dates: start: 20100126, end: 20120122
  4. CONCERTA [Concomitant]
  5. ZOLOFT [Concomitant]

REACTIONS (2)
  - URINARY TRACT INFECTION [None]
  - PRIAPISM [None]
